FAERS Safety Report 25188323 (Version 2)
Quarter: 2025Q2

REPORT INFORMATION
  Report Type: Report from Study
  Country: IT (occurrence: IT)
  Receive Date: 20250411
  Receipt Date: 20250521
  Transmission Date: 20250717
  Serious: Yes (Hospitalization, Other)
  Sender: MUNDIPHARMA EDO
  Company Number: IT-NAPPMUNDI-GBR-2025-0124752

PATIENT
  Age: 50 Year
  Sex: Male

DRUGS (1)
  1. REZAFUNGIN ACETATE [Suspect]
     Active Substance: REZAFUNGIN ACETATE
     Indication: Antifungal prophylaxis
     Route: 065
     Dates: start: 20250212, end: 20250212

REACTIONS (1)
  - Septic embolus [Recovered/Resolved]

NARRATIVE: CASE EVENT DATE: 20250219
